FAERS Safety Report 8342119-9 (Version None)
Quarter: 2012Q2

REPORT INFORMATION
  Report Type: 
  Country: None (occurrence: None)
  Receive Date: 20120507
  Receipt Date: 20120501
  Transmission Date: 20120825
  Serious: No
  Sender: FDA-Public Use
  Company Number: US-TEVA-336504USA

PATIENT
  Sex: Female

DRUGS (4)
  1. COPAXONE [Suspect]
     Indication: MULTIPLE SCLEROSIS
     Dosage: 20 MILLIGRAM;
     Route: 058
     Dates: start: 20120310
  2. ERGOCALCIFEROL [Concomitant]
  3. CETIRIZINE HCL [Concomitant]
  4. MULTI-VITAMINS [Concomitant]

REACTIONS (2)
  - DYSPNOEA [None]
  - DIZZINESS [None]
